FAERS Safety Report 9923129 (Version 1)
Quarter: 2014Q1

REPORT INFORMATION
  Report Type: Report from Study
  Country: US (occurrence: US)
  Receive Date: 20140225
  Receipt Date: 20140225
  Transmission Date: 20141002
  Serious: Yes (Other)
  Sender: FDA-Public Use
  Company Number: US-MPIJNJ-2014MPI000514

PATIENT
  Age: 66 Year
  Sex: Male
  Weight: 85.5 kg

DRUGS (10)
  1. VELCADE [Suspect]
     Indication: PLASMA CELL MYELOMA
     Dosage: UNK
     Dates: start: 20110110, end: 20110324
  2. LENALIDOMIDE [Suspect]
     Indication: PLASMA CELL MYELOMA
     Dosage: UNK
     Dates: start: 20110110, end: 20110324
  3. LENALIDOMIDE [Suspect]
     Dosage: UNK
     Dates: start: 20110420, end: 20130205
  4. DEXAMETHASONE [Suspect]
     Indication: PLASMA CELL MYELOMA
     Dosage: UNK
     Dates: start: 20110110, end: 20110324
  5. CARVEDILOL [Concomitant]
     Dosage: 12.5 MG, BID
     Dates: start: 20130702
  6. CIPRO                              /00697201/ [Concomitant]
     Dosage: 500 MG, BID
     Dates: start: 20131118
  7. KLOR-CON [Concomitant]
     Dosage: 40 MEQ, BID
     Dates: start: 20130903
  8. MAG-OX [Concomitant]
     Dosage: 400 MG, TID
     Dates: start: 20131021
  9. AUGMENTIN [Concomitant]
     Dosage: 125 MG, BID FOR 10 DAY
     Dates: start: 20130917
  10. LISINOPRIL [Concomitant]
     Dosage: 2.5 MG, QD
     Dates: start: 20130606

REACTIONS (1)
  - Myelodysplastic syndrome [Not Recovered/Not Resolved]
